FAERS Safety Report 21476303 (Version 1)
Quarter: 2022Q4

REPORT INFORMATION
  Report Type: Spontaneous
  Country: FR (occurrence: FR)
  Receive Date: 20221019
  Receipt Date: 20221019
  Transmission Date: 20230113
  Serious: Yes (Hospitalization)
  Sender: FDA-Public Use
  Company Number: None

PATIENT
  Age: 58 Year
  Sex: Female
  Weight: 58 kg

DRUGS (7)
  1. DOXORUBICIN HYDROCHLORIDE [Suspect]
     Active Substance: DOXORUBICIN HYDROCHLORIDE
     Indication: Chondrosarcoma
     Dosage: CHLORHYDRATE DE DOXORUBICINE, DURATION : 4 MONTH
     Dates: start: 202107, end: 202111
  2. PREDNISOLONE ACETATE [Suspect]
     Active Substance: PREDNISOLONE ACETATE
     Indication: Product used for unknown indication
     Dosage: 60 MILLIGRAM DAILY; ACETATE DE PREDNISOLONE, DURATION : 2 DAY
     Dates: start: 20220328, end: 20220330
  3. PREGABALIN [Suspect]
     Active Substance: PREGABALIN
     Indication: Neuralgia
     Dosage: 225 MILLIGRAM DAILY;
     Dates: end: 20220330
  4. PAZOPANIB [Suspect]
     Active Substance: PAZOPANIB
     Indication: Sarcoma
     Dosage: 800MG/2TIMES A DAY,
     Dates: start: 202203, end: 20220330
  5. SKENAN [Concomitant]
     Active Substance: MORPHINE SULFATE
     Indication: Pain
     Dosage: 20 MILLIGRAM DAILY; THERAPY START DATE AND END DATE : NASK
  6. CISPLATIN [Concomitant]
     Active Substance: CISPLATIN
     Indication: Sarcoma
     Dates: start: 202107, end: 202107
  7. PROTHIADEN [Concomitant]
     Active Substance: DOTHIEPIN HYDROCHLORIDE
     Indication: Product used for unknown indication
     Dosage: 75 MILLIGRAM DAILY;  PROTHIADEN 75 MG, THERAPY START DATE : NASK
     Dates: end: 20220330

REACTIONS (1)
  - Cardiac failure [Recovering/Resolving]

NARRATIVE: CASE EVENT DATE: 20220328
